FAERS Safety Report 5079381-4 (Version None)
Quarter: 2006Q3

REPORT INFORMATION
  Report Type: 
  Country: None (occurrence: None)
  Receive Date: 20060809
  Receipt Date: 20060724
  Transmission Date: 20061208
  Serious: Yes (Other)
  Sender: FDA-Public Use
  Company Number: 2006001499

PATIENT
  Sex: Female

DRUGS (2)
  1. ERLOTINIB (TABLET) (ERLOTINIB HCI) [Suspect]
     Indication: NON-SMALL CELL LUNG CANCER
     Dosage: UNK (QD), ORAL
     Route: 048
     Dates: start: 20060405, end: 20060706
  2. BEVACIZUMAB (INJECTION FOR INFUSION) [Suspect]
     Indication: NON-SMALL CELL LUNG CANCER
     Dosage: INTRAVENOUS
     Route: 042
     Dates: start: 20060405, end: 20060607

REACTIONS (1)
  - IRIDOCYCLITIS [None]
